FAERS Safety Report 11751883 (Version 1)
Quarter: 2015Q4

REPORT INFORMATION
  Report Type: Spontaneous
  Country: US (occurrence: US)
  Receive Date: 20151118
  Receipt Date: 20151118
  Transmission Date: 20160304
  Serious: No
  Sender: FDA-Public Use
  Company Number: US-AQUA-2015AQU000044

PATIENT
  Age: 73 Year
  Sex: Female

DRUGS (1)
  1. VERDESO [Suspect]
     Active Substance: DESONIDE
     Indication: SKIN DISORDER
     Dosage: UNK, BID
     Route: 061
     Dates: start: 201507

REACTIONS (2)
  - Application site pain [Unknown]
  - Product physical consistency issue [Recovered/Resolved]

NARRATIVE: CASE EVENT DATE: 201508
